FAERS Safety Report 13896954 (Version 1)
Quarter: 2017Q3

REPORT INFORMATION
  Report Type: Spontaneous
  Country: US (occurrence: None)
  Receive Date: 20170822
  Receipt Date: 20170822
  Transmission Date: 20171127
  Serious: Yes (Other)
  Sender: FDA-Public Use
  Company Number: None

PATIENT
  Age: 63 Year
  Sex: Female
  Weight: 57.61 kg

DRUGS (3)
  1. CALCIUM/VITAMIN D [Concomitant]
     Active Substance: CALCIUM\VITAMIN D
  2. BUPROPION. [Suspect]
     Active Substance: BUPROPION
     Indication: FIBROMYALGIA
     Dosage: QUANTITY:2 ?
     Route: 048
     Dates: start: 20160102
  3. MELOXICAM. [Concomitant]
     Active Substance: MELOXICAM

REACTIONS (6)
  - Drug ineffective [None]
  - Fatigue [None]
  - Pain [None]
  - Confusional state [None]
  - Product substitution issue [None]
  - Depression [None]

NARRATIVE: CASE EVENT DATE: 20160404
